FAERS Safety Report 7503470-5 (Version None)
Quarter: 2011Q2

REPORT INFORMATION
  Report Type: 
  Country: None (occurrence: None)
  Receive Date: 20110525
  Receipt Date: 20110519
  Transmission Date: 20111010
  Serious: Yes (Other)
  Sender: FDA-Public Use
  Company Number: DE-PFIZER INC-2011084181

PATIENT
  Age: 37 Year
  Sex: Male
  Weight: 92 kg

DRUGS (4)
  1. VARENICLINE TARTRATE [Suspect]
     Dosage: UNK
     Dates: start: 20101125, end: 20101201
  2. VARENICLINE TARTRATE [Suspect]
     Dosage: 2 MG/DAY
     Dates: start: 20101202, end: 20101208
  3. VARENICLINE TARTRATE [Suspect]
     Dosage: 1 MG/DAY
     Dates: start: 20101119, end: 20101124
  4. VARENICLINE TARTRATE [Suspect]
     Indication: SMOKING CESSATION THERAPY
     Dosage: 0.5 MG, 1X/DAY
     Dates: start: 20101115, end: 20101118

REACTIONS (3)
  - MOOD SWINGS [None]
  - APATHY [None]
  - DEPRESSED MOOD [None]
